FAERS Safety Report 11763536 (Version 1)
Quarter: 2015Q4

REPORT INFORMATION
  Report Type: Spontaneous
  Country: US (occurrence: US)
  Receive Date: 20151120
  Receipt Date: 20151120
  Transmission Date: 20160304
  Serious: No
  Sender: FDA-Public Use
  Company Number: US-ELI_LILLY_AND_COMPANY-US201212004475

PATIENT
  Age: 63 Year
  Sex: Female

DRUGS (2)
  1. FORTEO [Suspect]
     Active Substance: TERIPARATIDE
     Dosage: 1 DF, QD
  2. FORTEO [Suspect]
     Active Substance: TERIPARATIDE
     Dosage: 1 DF, QD
     Dates: start: 20121028

REACTIONS (14)
  - Malaise [Unknown]
  - Dizziness [Unknown]
  - Arthralgia [Unknown]
  - Myalgia [Unknown]
  - Pain in extremity [Unknown]
  - Nerve injury [Unknown]
  - Headache [Recovered/Resolved]
  - Insomnia [Unknown]
  - Pain [Unknown]
  - Hot flush [Unknown]
  - Nausea [Recovering/Resolving]
  - Injection site haemorrhage [Unknown]
  - Cyst [Unknown]
  - Back pain [Unknown]

NARRATIVE: CASE EVENT DATE: 20121028
